FAERS Safety Report 7961965 (Version 2)
Quarter: 2012Q4

REPORT INFORMATION
  Report Type: 
  Country: US (occurrence: US)
  Receive Date: 20110526
  Receipt Date: 20121004
  Transmission Date: 20130627
  Serious: Yes (Hospitalization, Other)
  Sender: FDA-Public Use
  Company Number: US-TEVA-282972USA

PATIENT
  Age: 57 Year
  Sex: Male
  Weight: 73 kg

DRUGS (3)
  1. CARBAMAZEPINE [Suspect]
     Indication: CONVULSION
     Dosage: 800 Milligram Daily;
     Route: 048
  2. PHENOBARBITAL [Suspect]
     Indication: CONVULSION
     Dosage: 129.6 Milligram Daily;
     Route: 048
  3. TACROLIMUS [Suspect]
     Indication: RENAL TRANSPLANT
     Dosage: 6 Milligram Daily;

REACTIONS (2)
  - Transplant rejection [Recovered/Resolved]
  - Drug interaction [Recovered/Resolved]
